FAERS Safety Report 21736151 (Version 1)
Quarter: 2022Q4

REPORT INFORMATION
  Report Type: Spontaneous
  Country: CA (occurrence: CA)
  Receive Date: 20221215
  Receipt Date: 20221215
  Transmission Date: 20230113
  Serious: Yes (Other)
  Sender: FDA-Public Use
  Company Number: CA-CELLTRION INC.-2021CA000330

PATIENT

DRUGS (18)
  1. INFLECTRA [Suspect]
     Active Substance: INFLIXIMAB-DYYB
     Indication: Ankylosing spondylitis
     Dosage: 400 MG WEEK Q 0, 2,6 THEN EVERY 8 WEEKS
     Route: 042
     Dates: start: 20210901
  2. INFLECTRA [Suspect]
     Active Substance: INFLIXIMAB-DYYB
     Indication: Psoriatic arthropathy
     Dosage: 400 MG WEEK Q 0, 2,6 THEN EVERY 8 WEEKS
     Route: 042
     Dates: start: 20210922
  3. INFLECTRA [Suspect]
     Active Substance: INFLIXIMAB-DYYB
     Dosage: 400 MG WEEK Q 0, 2,6 THEN EVERY 8 WEEKS
     Route: 042
     Dates: start: 20211020
  4. INFLECTRA [Suspect]
     Active Substance: INFLIXIMAB-DYYB
     Dosage: 400 MG WEEK Q 0, 2,6 THEN EVERY 8 WEEKS
     Route: 042
     Dates: start: 20220209
  5. INFLECTRA [Suspect]
     Active Substance: INFLIXIMAB-DYYB
     Dosage: 400 MG WEEK Q 0, 2,6 THEN EVERY 8 WEEKS
     Route: 042
     Dates: start: 20220209
  6. INFLECTRA [Suspect]
     Active Substance: INFLIXIMAB-DYYB
     Dosage: 400 MG WEEK Q 0, 2,6 THEN EVERY 8 WEEKS
     Route: 042
     Dates: start: 20220405
  7. INFLECTRA [Suspect]
     Active Substance: INFLIXIMAB-DYYB
     Dosage: 400 MG WEEK Q 0, 2,6 THEN EVERY 8 WEEKS
     Route: 042
     Dates: start: 20220919
  8. INFLECTRA [Suspect]
     Active Substance: INFLIXIMAB-DYYB
     Dosage: 400 MG WEEK Q 0, 2,6 THEN EVERY 8 WEEKS
     Route: 042
     Dates: start: 20221205
  9. BUPROPION [Concomitant]
     Active Substance: BUPROPION
     Dosage: UNK
  10. CLONAZEPAM [Concomitant]
     Active Substance: CLONAZEPAM
     Dosage: UNK
  11. HYDROCHLOROTHIAZIDE [Concomitant]
     Active Substance: HYDROCHLOROTHIAZIDE
     Dosage: UNK
  12. LORAZEPAM [Concomitant]
     Active Substance: LORAZEPAM
     Dosage: UNK
  13. PANTOPRAZOLE [Concomitant]
     Active Substance: PANTOPRAZOLE
     Dosage: UNK
  14. PREDNISONE [Concomitant]
     Active Substance: PREDNISONE
     Dosage: 1 DF, 1X/DAY, 5- 10 MG A DAY
  15. RAMIPRIL [Concomitant]
     Active Substance: RAMIPRIL
     Dosage: UNK
  16. ROSUVASTATIN [Concomitant]
     Active Substance: ROSUVASTATIN
     Dosage: UNK
  17. SYNTHROID [Concomitant]
     Active Substance: LEVOTHYROXINE SODIUM
     Dosage: UNK
  18. TRAZODONE [Concomitant]
     Active Substance: TRAZODONE HYDROCHLORIDE
     Dosage: UNK

REACTIONS (17)
  - Hypertension [Not Recovered/Not Resolved]
  - Off label use [Unknown]
  - Off label use [Unknown]
  - Intentional product use issue [Unknown]
  - Inappropriate schedule of product administration [Unknown]
  - Product prescribing error [Unknown]
  - Diarrhoea [Not Recovered/Not Resolved]
  - Blood pressure fluctuation [Unknown]
  - Oropharyngeal pain [Not Recovered/Not Resolved]
  - Nervousness [Not Recovered/Not Resolved]
  - Blood pressure increased [Not Recovered/Not Resolved]
  - Tachycardia [Unknown]
  - Body temperature decreased [Not Recovered/Not Resolved]
  - Heart rate irregular [Recovering/Resolving]
  - Respiratory disorder [Unknown]
  - Illness [Unknown]
  - Cough [Unknown]

NARRATIVE: CASE EVENT DATE: 20210901
